FAERS Safety Report 16058460 (Version 1)
Quarter: 2019Q1

REPORT INFORMATION
  Report Type: Spontaneous
  Country: PK (occurrence: PK)
  Receive Date: 20190311
  Receipt Date: 20190311
  Transmission Date: 20190418
  Serious: Yes (Hospitalization)
  Sender: FDA-Public Use
  Company Number: PK-NOVOPROD-650335

PATIENT
  Age: 55 Year
  Sex: Male

DRUGS (1)
  1. NOVOMIX 30 FLEXPEN [Suspect]
     Active Substance: INSULIN ASPART
     Indication: TYPE 2 DIABETES MELLITUS
     Dosage: 80 IU, QD(50+30 UNITS)
     Route: 058
     Dates: start: 20181225

REACTIONS (2)
  - Leg amputation [Not Recovered/Not Resolved]
  - Blood glucose increased [Not Recovered/Not Resolved]
